FAERS Safety Report 18086696 (Version 1)
Quarter: 2020Q3

REPORT INFORMATION
  Report Type: Spontaneous
  Country: AR (occurrence: AR)
  Receive Date: 20200729
  Receipt Date: 20200729
  Transmission Date: 20201103
  Serious: Yes (Hospitalization, Other)
  Sender: FDA-Public Use
  Company Number: AR-COVIS PHARMA B.V.-2020COV00310

PATIENT
  Age: 66 Year
  Sex: Female

DRUGS (2)
  1. OMEPRAZOLE MAGNESIUM. [Suspect]
     Active Substance: OMEPRAZOLE MAGNESIUM
     Route: 048
  2. THYROXINE SODIUM [Suspect]
     Active Substance: LEVOTHYROXINE SODIUM

REACTIONS (4)
  - Vomiting [Unknown]
  - Haematemesis [Unknown]
  - SARS-CoV-2 test negative [Unknown]
  - Musculoskeletal stiffness [Unknown]
